FAERS Safety Report 6732272-2 (Version None)
Quarter: 2010Q2

REPORT INFORMATION
  Report Type: 
  Country: None (occurrence: None)
  Receive Date: 20100519
  Receipt Date: 20100512
  Transmission Date: 20101027
  Serious: Yes (Other)
  Sender: FDA-Public Use
  Company Number: B0652785A

PATIENT
  Sex: Female

DRUGS (4)
  1. PAXIL [Suspect]
     Indication: DEPRESSION
     Dosage: 30MG PER DAY
     Route: 048
     Dates: start: 20070301
  2. PAXIL [Suspect]
     Dosage: 20MG PER DAY
     Route: 048
     Dates: start: 20100501
  3. CHINESE MEDICINE [Concomitant]
     Route: 048
  4. DEPAS [Concomitant]
     Indication: PANIC DISORDER
     Route: 048

REACTIONS (2)
  - AGGRESSION [None]
  - SOMNAMBULISM [None]
